FAERS Safety Report 10053361 (Version 2)
Quarter: 2014Q2

REPORT INFORMATION
  Report Type: Spontaneous
  Country: US (occurrence: US)
  Receive Date: 20140402
  Receipt Date: 20140402
  Transmission Date: 20141212
  Serious: Yes (Other)
  Sender: FDA-Public Use
  Company Number: US-BANPHARM-20142455

PATIENT
  Age: 72 Year
  Sex: Female
  Weight: 53.52 kg

DRUGS (1)
  1. ALEVE LIQUID GELS 220 MG [Suspect]
     Indication: ARTHRITIS
     Dosage: ONLY ONCE,
     Route: 048
     Dates: start: 20140315, end: 20140315

REACTIONS (4)
  - Choking [Recovered/Resolved]
  - Dysgeusia [Recovered/Resolved]
  - Foreign body [Recovered/Resolved]
  - Drug ineffective [Unknown]
